FAERS Safety Report 23345920 (Version 1)
Quarter: 2023Q4

REPORT INFORMATION
  Report Type: Spontaneous
  Country: US (occurrence: None)
  Receive Date: 20231228
  Receipt Date: 20231228
  Transmission Date: 20240109
  Serious: No
  Sender: FDA-Public Use
  Company Number: 2023A291856

PATIENT

DRUGS (2)
  1. FARXIGA [Suspect]
     Active Substance: DAPAGLIFLOZIN PROPANEDIOL
     Route: 048
  2. FILSPARI [Concomitant]
     Active Substance: SPARSENTAN

REACTIONS (2)
  - Muscle fatigue [Not Recovered/Not Resolved]
  - Myalgia [Not Recovered/Not Resolved]
